FAERS Safety Report 6295076-3 (Version None)
Quarter: 2009Q3

REPORT INFORMATION
  Report Type: 
  Country: None (occurrence: None)
  Receive Date: 20090731
  Receipt Date: 20090731
  Transmission Date: 20100115
  Serious: No
  Sender: FDA-Public Use
  Company Number: None

PATIENT
  Age: 54 Year
  Sex: Male
  Weight: 104.3273 kg

DRUGS (1)
  1. ZICAM MATRIXX [Suspect]
     Indication: NASOPHARYNGITIS
     Dosage: 1 PUMP 2 TO 4 HOURS NASAL
     Route: 045
     Dates: start: 20040101, end: 20090701

REACTIONS (3)
  - HYPOSMIA [None]
  - PAROSMIA [None]
  - SINUS DISORDER [None]
